FAERS Safety Report 14789658 (Version 2)
Quarter: 2018Q3

REPORT INFORMATION
  Report Type: Spontaneous
  Country: US (occurrence: US)
  Receive Date: 20180423
  Receipt Date: 20180709
  Transmission Date: 20181010
  Serious: Yes (Other)
  Sender: FDA-Public Use
  Company Number: US-MYLANLABS-2018M1026945

PATIENT
  Sex: Male
  Weight: 19.96 kg

DRUGS (1)
  1. FELBAMATE. [Suspect]
     Active Substance: FELBAMATE
     Indication: SEIZURE
     Dosage: 5 ML IN THE MORNING AND AFTERNOON AND 4 ML AT NIGHT

REACTIONS (1)
  - Seizure [Unknown]
